FAERS Safety Report 17163473 (Version 1)
Quarter: 2019Q4

REPORT INFORMATION
  Report Type: Spontaneous
  Country: SE (occurrence: SE)
  Receive Date: 20191217
  Receipt Date: 20191217
  Transmission Date: 20200122
  Serious: Yes (Hospitalization)
  Sender: FDA-Public Use
  Company Number: SE-TEVA-2019-SE-1152510

PATIENT
  Age: 21 Year
  Sex: Female

DRUGS (5)
  1. LERGIGAN [PROMETHAZINE HYDROCHLORIDE] [Suspect]
     Active Substance: PROMETHAZINE HYDROCHLORIDE
     Dosage: 25 MG 15 ST.
     Route: 048
     Dates: start: 20190617, end: 20190617
  2. STESOLID [Suspect]
     Active Substance: DIAZEPAM
     Dosage: 5-10, UNCLEAR STRENGTH
     Route: 048
     Dates: start: 20190617, end: 20190617
  3. CISORDINOL [Suspect]
     Active Substance: ZUCLOPENTHIXOL
     Dosage: 40 MG
     Route: 048
     Dates: start: 20190617, end: 20190617
  4. PROPAVAN [Suspect]
     Active Substance: PROPIOMAZINE
     Dosage: 25 MG 5 ST.
     Route: 048
     Dates: start: 20190617, end: 20190617
  5. IMOVANE [Suspect]
     Active Substance: ZOPICLONE
     Dosage: 7,5 3 ST.
     Route: 048
     Dates: start: 20190617, end: 20190617

REACTIONS (3)
  - Intentional self-injury [Unknown]
  - Fatigue [Unknown]
  - Intentional overdose [Unknown]

NARRATIVE: CASE EVENT DATE: 20190617
